FAERS Safety Report 23616302 (Version 1)
Quarter: 2024Q1

REPORT INFORMATION
  Report Type: Spontaneous
  Country: US (occurrence: None)
  Receive Date: 20240311
  Receipt Date: 20240311
  Transmission Date: 20240410
  Serious: Yes (Hospitalization)
  Sender: FDA-Public Use
  Company Number: None

PATIENT
  Sex: Female

DRUGS (2)
  1. AZATHIOPRINE [Suspect]
     Active Substance: AZATHIOPRINE
     Indication: Lung transplant
     Dosage: FREQUENCY : DAILY;?
     Route: 048
     Dates: start: 202305
  2. TACROLIMUS [Suspect]
     Active Substance: TACROLIMUS

REACTIONS (7)
  - Chills [None]
  - Nausea [None]
  - COVID-19 [None]
  - Retching [None]
  - Renal disorder [None]
  - Renal impairment [None]
  - Weight decreased [None]
